FAERS Safety Report 7092543-X (Version None)
Quarter: 2010Q4

REPORT INFORMATION
  Report Type: 
  Country: None (occurrence: None)
  Receive Date: 20101110
  Receipt Date: 20100616
  Transmission Date: 20110411
  Serious: Yes (Other)
  Sender: FDA-Public Use
  Company Number: US-BAYER-201021201NA

PATIENT
  Age: 48 Year
  Sex: Female

DRUGS (9)
  1. YAZ [Suspect]
     Indication: PRODUCT USED FOR UNKNOWN INDICATION
     Route: 048
     Dates: start: 20070101, end: 20071201
  2. YASMIN [Suspect]
     Indication: PRODUCT USED FOR UNKNOWN INDICATION
     Route: 048
  3. LIPITOR [Concomitant]
  4. WELLBUTRIN [Concomitant]
  5. MOTRIN [Concomitant]
  6. CITRACAL [Concomitant]
  7. ZETIA [Concomitant]
  8. BIOIDENTICAL HORMON REPLACEMENT THERAPY [Concomitant]
  9. FOLIC ACID [Concomitant]

REACTIONS (1)
  - THROMBOPHLEBITIS SUPERFICIAL [None]
